FAERS Safety Report 7462663-6 (Version None)
Quarter: 2011Q2

REPORT INFORMATION
  Report Type: 
  Country: None (occurrence: None)
  Receive Date: 20110506
  Receipt Date: 20110429
  Transmission Date: 20111010
  Serious: Yes (Other)
  Sender: FDA-Public Use
  Company Number: PHHY2011BR36573

PATIENT
  Sex: Male

DRUGS (1)
  1. AMLODIPINE BESYLATE AND VALSARTAN [Suspect]
     Indication: HYPERTENSION
     Dosage: 1 DF, BID  TABLET IN THE MORNING AND 1 TABLET AT NIGHT
     Route: 048

REACTIONS (5)
  - DEMENTIA ALZHEIMER'S TYPE [None]
  - ASPHYXIA [None]
  - GASTROOESOPHAGEAL REFLUX DISEASE [None]
  - INSOMNIA [None]
  - SENSATION OF FOREIGN BODY [None]
